FAERS Safety Report 6644423-9 (Version None)
Quarter: 2010Q1

REPORT INFORMATION
  Report Type: 
  Country: None (occurrence: None)
  Receive Date: 20100317
  Receipt Date: 20100224
  Transmission Date: 20100710
  Serious: Yes (Hospitalization)
  Sender: FDA-Public Use
  Company Number: JP-SOLVAY-00310001264

PATIENT
  Age: 82 Year
  Sex: Female

DRUGS (3)
  1. FLUVOXAMINE MALEATE [Suspect]
     Indication: DRUG USE FOR UNKNOWN INDICATION
     Dosage: 50 MILLIGRAM(S)
     Route: 048
     Dates: start: 20070413, end: 20070413
  2. ESTAZOLAM [Suspect]
     Indication: DRUG USE FOR UNKNOWN INDICATION
     Dosage: 4 MILLIGRAM(S)
     Route: 048
     Dates: start: 20070413, end: 20070413
  3. LORAZEPAM [Suspect]
     Indication: DRUG USE FOR UNKNOWN INDICATION
     Dosage: 1 MILLIGRAM(S)
     Route: 048
     Dates: start: 20070413, end: 20070413

REACTIONS (2)
  - ALTERED STATE OF CONSCIOUSNESS [None]
  - PNEUMONIA [None]
